FAERS Safety Report 4577709-2 (Version None)
Quarter: 2005Q1

REPORT INFORMATION
  Report Type: 
  Country: None (occurrence: None)
  Receive Date: 20050127
  Receipt Date: 20040826
  Transmission Date: 20050727
  Serious: No
  Sender: FDA-Public Use
  Company Number: USA040876600

PATIENT
  Age: 52 Year
  Sex: Male
  Weight: 89 kg

DRUGS (1)
  1. STRATTERA [Suspect]
     Indication: ATTENTION DEFICIT/HYPERACTIVITY DISORDER
     Dosage: 80 MG DAY
     Dates: start: 20040601, end: 20040819

REACTIONS (5)
  - DRUG INEFFECTIVE [None]
  - LACRIMATION INCREASED [None]
  - MEDICATION ERROR [None]
  - PARAESTHESIA [None]
  - TREMOR [None]
